FAERS Safety Report 21494511 (Version 1)
Quarter: 2022Q4

REPORT INFORMATION
  Report Type: Spontaneous
  Country: US (occurrence: US)
  Receive Date: 20221021
  Receipt Date: 20221021
  Transmission Date: 20230112
  Serious: No
  Sender: FDA-Public Use
  Company Number: US-BRACCO-2022US02940

PATIENT
  Age: 44 Year
  Sex: Female

DRUGS (1)
  1. MULTIHANCE [Suspect]
     Active Substance: GADOBENATE DIMEGLUMINE
     Dosage: 15 MG

REACTIONS (4)
  - Cough [Unknown]
  - Rash erythematous [Unknown]
  - Urticaria [Unknown]
  - Nausea [Unknown]

NARRATIVE: CASE EVENT DATE: 20220713
